FAERS Safety Report 25881382 (Version 1)
Quarter: 2025Q4

REPORT INFORMATION
  Report Type: Spontaneous
  Country: US (occurrence: US)
  Receive Date: 20251005
  Receipt Date: 20251005
  Transmission Date: 20260117
  Serious: No
  Sender: SANOFI AVENTIS
  Company Number: US-SA-2025SA293866

PATIENT
  Age: 1 Year
  Sex: Male

DRUGS (1)
  1. ALTUVIIIO [Suspect]
     Active Substance: EFANESOCTOCOG ALFA
     Dosage: 370 IU
     Route: 042

REACTIONS (1)
  - Hand-foot-and-mouth disease [Unknown]

NARRATIVE: CASE EVENT DATE: 20250801
